FAERS Safety Report 9296121 (Version 1)
Quarter: 2013Q2

REPORT INFORMATION
  Report Type: Report from Study
  Country: TR (occurrence: TR)
  Receive Date: 20130517
  Receipt Date: 20130517
  Transmission Date: 20140414
  Serious: Yes (Death, Other)
  Sender: FDA-Public Use
  Company Number: TR-SANOFI-AVENTIS-2013SA050008

PATIENT
  Sex: Male

DRUGS (3)
  1. FLUOROURACIL [Suspect]
     Indication: COLORECTAL CANCER
     Route: 065
  2. OXALIPLATIN [Suspect]
     Indication: COLORECTAL CANCER
     Route: 065
  3. FOLINIC ACID [Suspect]
     Indication: COLORECTAL CANCER
     Route: 065

REACTIONS (3)
  - Febrile neutropenia [Fatal]
  - Neutropenia [Unknown]
  - Mucosal inflammation [Unknown]
